FAERS Safety Report 9127784 (Version 2)
Quarter: 2016Q2

REPORT INFORMATION
  Report Type: Spontaneous
  Country: IT (occurrence: IT)
  Receive Date: 20130122
  Receipt Date: 20160629
  Transmission Date: 20160815
  Serious: Yes (Other)
  Sender: FDA-Public Use
  Company Number: IT-RANBAXY-2013US-64338

PATIENT
  Sex: Female

DRUGS (2)
  1. TOPIRAMATE. [Suspect]
     Active Substance: TOPIRAMATE
     Indication: COMPLEX PARTIAL SEIZURES
     Dosage: 0.5 MG/KG, DAILY
     Route: 065
  2. TOPIRAMATE. [Suspect]
     Active Substance: TOPIRAMATE
     Indication: COMPLEX PARTIAL SEIZURES
     Dosage: 3.3 MG/KG, DAILY (25 MG, BID)
     Route: 065

REACTIONS (9)
  - Headache [Unknown]
  - Fatigue [Unknown]
  - Irritability [Unknown]
  - Hyperthermia [Recovered/Resolved]
  - Insomnia [Recovered/Resolved]
  - Dry skin [Recovered/Resolved]
  - Decreased appetite [Recovered/Resolved]
  - Hypohidrosis [Recovered/Resolved]
  - Middle insomnia [Recovered/Resolved]
